FAERS Safety Report 6024179-3 (Version None)
Quarter: 2008Q4

REPORT INFORMATION
  Report Type: 
  Country: None (occurrence: None)
  Receive Date: 20081224
  Receipt Date: 20081210
  Transmission Date: 20090506
  Serious: Yes (Hospitalization)
  Sender: FDA-Public Use
  Company Number: KV200801119

PATIENT
  Age: 41 Year
  Sex: Male

DRUGS (4)
  1. ISOSORBIDE MONONITRATE [Suspect]
     Indication: BLOOD PRESSURE
     Dosage: 30 MG, QD, ORAL
     Route: 048
     Dates: start: 20081112, end: 20081115
  2. LOPRESSOR [Concomitant]
  3. LISINOPRIL [Concomitant]
  4. DIURETICS [Concomitant]

REACTIONS (7)
  - ARTHRALGIA [None]
  - HYPOAESTHESIA [None]
  - MUSCULOSKELETAL DISCOMFORT [None]
  - PAIN [None]
  - PARAESTHESIA [None]
  - PRODUCT QUALITY ISSUE [None]
  - SLEEP APNOEA SYNDROME [None]
